FAERS Safety Report 19182034 (Version 3)
Quarter: 2022Q4

REPORT INFORMATION
  Report Type: Spontaneous
  Country: US (occurrence: US)
  Receive Date: 20210426
  Receipt Date: 20221017
  Transmission Date: 20230112
  Serious: Yes (Life-Threatening, Other)
  Sender: FDA-Public Use
  Company Number: US-PFIZER INC-2021406327

PATIENT
  Age: 81 Year
  Sex: Female
  Weight: 61.23 kg

DRUGS (2)
  1. XELJANZ [Suspect]
     Active Substance: TOFACITINIB CITRATE
     Indication: Pain
     Dosage: 5 MG
     Route: 048
  2. XELJANZ [Suspect]
     Active Substance: TOFACITINIB CITRATE
     Indication: Arthralgia

REACTIONS (6)
  - Near death experience [Unknown]
  - Neoplasm malignant [Unknown]
  - Off label use [Unknown]
  - Memory impairment [Unknown]
  - Hand deformity [Unknown]
  - Gait disturbance [Unknown]
